FAERS Safety Report 24945273 (Version 1)
Quarter: 2025Q1

REPORT INFORMATION
  Report Type: Report from Study
  Country: US (occurrence: US)
  Receive Date: 20250209
  Receipt Date: 20250209
  Transmission Date: 20250409
  Serious: Yes (Other)
  Sender: ABBVIE
  Company Number: US-ABBVIE-6117050

PATIENT
  Age: 66 Year
  Sex: Male

DRUGS (1)
  1. RINVOQ [Suspect]
     Active Substance: UPADACITINIB
     Indication: Product used for unknown indication
     Route: 048
     Dates: start: 20250101

REACTIONS (7)
  - Post procedural haemorrhage [Recovered/Resolved]
  - Joint swelling [Recovered/Resolved]
  - Joint stiffness [Recovering/Resolving]
  - Back disorder [Recovering/Resolving]
  - Joint stiffness [Recovered/Resolved]
  - Pain [Recovered/Resolved]
  - Tooth extraction [Recovering/Resolving]

NARRATIVE: CASE EVENT DATE: 20250101
